FAERS Safety Report 8244816-2 (Version None)
Quarter: 2012Q1

REPORT INFORMATION
  Report Type: 
  Country: None (occurrence: None)
  Receive Date: 20120329
  Receipt Date: 20110512
  Transmission Date: 20120608
  Serious: No
  Sender: FDA-Public Use
  Company Number: US-MYLANLABS-2011S1009635

PATIENT
  Age: 47 Year
  Sex: Female
  Weight: 70.31 kg

DRUGS (3)
  1. FENTANYL-100 [Suspect]
     Dosage: CHANGED Q 72 HOURS.
     Route: 062
  2. FENTANYL-100 [Suspect]
     Dosage: CHANGED Q 72 HOURS.
     Route: 062
     Dates: start: 20110401
  3. FENTANYL-100 [Suspect]
     Indication: PAIN
     Dosage: CHANGED Q 72 HOURS.
     Route: 062
     Dates: start: 20110201, end: 20110401

REACTIONS (5)
  - PAIN [None]
  - APPLICATION SITE IRRITATION [None]
  - DRUG INEFFECTIVE [None]
  - APPLICATION SITE SCAR [None]
  - APPLICATION SITE ERYTHEMA [None]
